FAERS Safety Report 4632604-5 (Version None)
Quarter: 2005Q2

REPORT INFORMATION
  Report Type: 
  Country: None (occurrence: None)
  Receive Date: 20050408
  Receipt Date: 20050329
  Transmission Date: 20051028
  Serious: Yes (Life-Threatening)
  Sender: FDA-Public Use
  Company Number: GXKR2005US00733

PATIENT
  Age: 77 Year
  Sex: Male

DRUGS (9)
  1. SULFAMETHOXAZOLE AND TRIMETHOPRIM [Suspect]
     Indication: URINARY TRACT INFECTION
     Dosage: 800 60 MG, BID, ORAL
     Route: 048
  2. FOSINOPRIL (FISINOPRIL) [Concomitant]
  3. LEVOTHYROXINE SODIUM [Concomitant]
  4. INSULIN [Concomitant]
  5. SODIUM BICARBONATE IN PLASTIC CONTAINER [Concomitant]
  6. DILTIAZEM [Concomitant]
  7. PRAVASTATIN [Concomitant]
  8. LANSOPRAZOLE [Concomitant]
  9. CALCIUM CARBONATE (CALCIUM CARBONATE) [Concomitant]

REACTIONS (3)
  - HYPERKALAEMIA [None]
  - METABOLIC ACIDOSIS [None]
  - RENAL IMPAIRMENT [None]
